FAERS Safety Report 10155209 (Version 1)
Quarter: 2014Q2

REPORT INFORMATION
  Report Type: Spontaneous
  Country: US (occurrence: US)
  Receive Date: 20140506
  Receipt Date: 20140506
  Transmission Date: 20141212
  Serious: No
  Sender: FDA-Public Use
  Company Number: US-ASTRAZENECA-2014SE16259

PATIENT
  Age: 68 Year
  Sex: Female

DRUGS (6)
  1. PRILOSEC [Suspect]
     Route: 048
     Dates: start: 201311, end: 201312
  2. ARMOUR THYROID [Concomitant]
     Indication: HYPOTHYROIDISM
  3. CORTEF [Concomitant]
     Indication: CHRONIC FATIGUE SYNDROME
  4. DIGESTIVE ENZYMES [Concomitant]
  5. MULTIVITAMINS [Concomitant]
  6. SUPPLEMENTS [Concomitant]

REACTIONS (3)
  - Dry skin [Not Recovered/Not Resolved]
  - Alopecia [Unknown]
  - Thyroid disorder [Unknown]
